FAERS Safety Report 6862659-9 (Version None)
Quarter: 2010Q3

REPORT INFORMATION
  Report Type: 
  Country: None (occurrence: None)
  Receive Date: 20100721
  Receipt Date: 20100713
  Transmission Date: 20110219
  Serious: Yes (Death, Other)
  Sender: FDA-Public Use
  Company Number: GB-ROCHE-688936

PATIENT
  Sex: Female
  Weight: 45 kg

DRUGS (5)
  1. XELODA [Suspect]
     Indication: COLON CANCER
     Route: 048
     Dates: start: 20100106, end: 20100113
  2. PIRITON [Suspect]
     Indication: PRODUCT USED FOR UNKNOWN INDICATION
     Route: 065
     Dates: start: 20100113
  3. AMLODIPINE [Concomitant]
     Indication: HYPERTENSION
     Route: 048
     Dates: start: 20080723
  4. BENDROFLUMETHIAZIDE [Concomitant]
     Indication: HYPERTENSION
     Route: 048
     Dates: start: 20080618
  5. SIMVASTATIN [Concomitant]
     Route: 048
     Dates: start: 20080618

REACTIONS (10)
  - CONVULSION [None]
  - DIARRHOEA [None]
  - FATIGUE [None]
  - MULTI-ORGAN FAILURE [None]
  - NAUSEA [None]
  - NEUTROPENIC SEPSIS [None]
  - PALMAR ERYTHEMA [None]
  - PANCYTOPENIA [None]
  - RASH PUSTULAR [None]
  - VOMITING [None]
